FAERS Safety Report 9972634 (Version 1)
Quarter: 2014Q1

REPORT INFORMATION
  Report Type: Report from Study
  Country: US (occurrence: US)
  Receive Date: 20140306
  Receipt Date: 20140306
  Transmission Date: 20141002
  Serious: No
  Sender: FDA-Public Use
  Company Number: US-ABBVIE-13P-163-1154280-00

PATIENT
  Age: 77 Year
  Sex: Male

DRUGS (14)
  1. HUMIRA [Suspect]
     Indication: CROHN^S DISEASE
     Dates: start: 20130903, end: 20130903
  2. HUMIRA [Suspect]
     Dates: start: 20130917, end: 20130917
  3. HUMIRA [Suspect]
     Dates: start: 20131010
  4. PENTASA [Concomitant]
     Indication: PRODUCT USED FOR UNKNOWN INDICATION
     Dosage: 3 IN THE MORNING, 2 IN THE AFTERNOON AND 3 AT THE HOUR OF SLEEP
  5. RANITIDINE [Concomitant]
     Indication: CROHN^S DISEASE
     Dosage: 300MG DAILY
  6. PREVALITE [Concomitant]
     Indication: CROHN^S DISEASE
  7. METFORMIN [Concomitant]
     Indication: DIABETES MELLITUS
     Dosage: 500MG DAILY
  8. ATENOLOL [Concomitant]
     Indication: HYPERTENSION
     Dosage: 50MG DAILY
  9. INDOMETHACIN [Concomitant]
     Indication: BACK PAIN
  10. CYMBALTA [Concomitant]
     Indication: BACK PAIN
  11. IRON [Concomitant]
     Indication: MINERAL SUPPLEMENTATION
     Dosage: 65MG DAILY
  12. VITAMIN D [Concomitant]
     Indication: VITAMIN SUPPLEMENTATION
  13. ASA [Concomitant]
     Indication: ROUTINE HEALTH MAINTENANCE
  14. MULTIVITAMIN [Concomitant]
     Indication: VITAMIN SUPPLEMENTATION

REACTIONS (1)
  - Injection site bruising [Recovering/Resolving]
